FAERS Safety Report 11171316 (Version 1)
Quarter: 2015Q2

REPORT INFORMATION
  Report Type: Spontaneous
  Country: US (occurrence: US)
  Receive Date: 20150608
  Receipt Date: 20150608
  Transmission Date: 20150821
  Serious: No
  Sender: FDA-Public Use
  Company Number: US-DRREDDYS-USA/USA/14/0039861

PATIENT
  Age: 53 Year
  Sex: Male

DRUGS (3)
  1. FEXOFENADINE HCL [Suspect]
     Active Substance: FEXOFENADINE HYDROCHLORIDE
     Indication: HYPERSENSITIVITY
  2. FEXOFENADINE HCL [Suspect]
     Active Substance: FEXOFENADINE HYDROCHLORIDE
     Indication: SINUS DISORDER
     Route: 048
  3. GUAIFENESIN. [Concomitant]
     Active Substance: GUAIFENESIN
     Indication: PRODUCT USED FOR UNKNOWN INDICATION
     Route: 065

REACTIONS (4)
  - Skin odour abnormal [Not Recovered/Not Resolved]
  - Parosmia [Not Recovered/Not Resolved]
  - Blood pressure fluctuation [Not Recovered/Not Resolved]
  - Dysgeusia [Not Recovered/Not Resolved]
